FAERS Safety Report 10507505 (Version 2)
Quarter: 2014Q4

REPORT INFORMATION
  Report Type: Other
  Country: US (occurrence: US)
  Receive Date: 20141009
  Receipt Date: 20141009
  Transmission Date: 20150528
  Serious: Yes (Disabling)
  Sender: FDA-Public Use
  Company Number: US-ENDO PHARMACEUTICALS INC.-METO20112054

PATIENT
  Sex: Male

DRUGS (2)
  1. METOCLOPRAMIDE HYDROCHLORIDE. [Suspect]
     Active Substance: METOCLOPRAMIDE HYDROCHLORIDE
     Indication: ABDOMINAL DISTENSION
  2. METOCLOPRAMIDE HYDROCHLORIDE. [Suspect]
     Active Substance: METOCLOPRAMIDE HYDROCHLORIDE
     Indication: DYSPEPSIA
     Dosage: UNK
     Route: 048

REACTIONS (3)
  - Dystonia [Not Recovered/Not Resolved]
  - Incorrect drug administration duration [Recovered/Resolved]
  - Tardive dyskinesia [Not Recovered/Not Resolved]
